FAERS Safety Report 8097055-2 (Version None)
Quarter: 2012Q1

REPORT INFORMATION
  Report Type: 
  Country: None (occurrence: None)
  Receive Date: 20120131
  Receipt Date: 20120119
  Transmission Date: 20120608
  Serious: Yes (Hospitalization)
  Sender: FDA-Public Use
  Company Number: FR-BRISTOL-MYERS SQUIBB COMPANY-16360208

PATIENT
  Age: 44 Year
  Sex: Female

DRUGS (7)
  1. ACETAMINOPHEN [Suspect]
     Dates: end: 20111211
  2. LOVENOX [Suspect]
     Dates: start: 20111201
  3. COUMADIN [Suspect]
     Dosage: INTERRUPTED 14DEC11 REINTRODUCED ON 05JAN12 (10 MG THE EVENING).
     Dates: start: 20111212
  4. CHLORMADINONE ACETATE TAB [Concomitant]
  5. MIGRALGINE [Suspect]
     Dosage: SOLUTION FOR INJECTION
     Route: 058
     Dates: start: 20111201
  6. ACETYLSALICYLIC ACID SRT [Suspect]
     Dates: end: 20111201
  7. AUGMENTIN '125' [Suspect]
     Dates: start: 20111212, end: 20111215

REACTIONS (1)
  - CYTOLYTIC HEPATITIS [None]
